FAERS Safety Report 4332026-0 (Version None)
Quarter: 2004Q1

REPORT INFORMATION
  Report Type: 
  Country: None (occurrence: None)
  Receive Date: 20040330
  Receipt Date: 20040310
  Transmission Date: 20041129
  Serious: Yes (Hospitalization)
  Sender: FDA-Public Use
  Company Number: B0326491A

PATIENT
  Age: 49 Year
  Sex: Male

DRUGS (1)
  1. ZANTAC [Suspect]
     Indication: ABDOMINAL PAIN UPPER

REACTIONS (5)
  - CLOSTRIDIAL INFECTION [None]
  - DRUG SCREEN POSITIVE [None]
  - GIARDIASIS [None]
  - WEIGHT DECREASED [None]
  - WHITE BLOOD CELL COUNT DECREASED [None]
